FAERS Safety Report 23101238 (Version 1)
Quarter: 2023Q4

REPORT INFORMATION
  Report Type: Spontaneous
  Country: US (occurrence: US)
  Receive Date: 20231024
  Receipt Date: 20231024
  Transmission Date: 20240109
  Serious: No
  Sender: FDA-Public Use
  Company Number: US-JNJFOC-20231054941

PATIENT

DRUGS (6)
  1. TOPIRAMATE [Suspect]
     Active Substance: TOPIRAMATE
     Indication: Product used for unknown indication
     Route: 048
  2. ACETAMINOPHEN [Suspect]
     Active Substance: ACETAMINOPHEN
  3. ATIVAN [Suspect]
     Active Substance: LORAZEPAM
  4. MORPHINE [Suspect]
     Active Substance: MORPHINE
  5. OXYCODONE HYDROCHLORIDE [Suspect]
     Active Substance: OXYCODONE HYDROCHLORIDE
  6. RITUXIMAB-PVVR [Concomitant]
     Active Substance: RITUXIMAB-PVVR
     Indication: Systemic lupus erythematosus
     Dosage: 500 MG/50 ML

REACTIONS (3)
  - Drug hypersensitivity [Unknown]
  - Malaise [Unknown]
  - Fatigue [Unknown]
